FAERS Safety Report 7931681-3 (Version None)
Quarter: 2011Q4

REPORT INFORMATION
  Report Type: 
  Country: None (occurrence: None)
  Receive Date: 20111121
  Receipt Date: 20111110
  Transmission Date: 20120403
  Serious: Yes (Hospitalization)
  Sender: FDA-Public Use
  Company Number: PHHY2011JP099618

PATIENT
  Age: 77 Year
  Sex: Male

DRUGS (1)
  1. FAMVIR [Suspect]
     Indication: HERPES ZOSTER
     Dosage: 250 MG, BID
     Route: 048
     Dates: start: 20111101, end: 20111102

REACTIONS (1)
  - LOSS OF CONSCIOUSNESS [None]
